FAERS Safety Report 15704126 (Version 1)
Quarter: 2018Q4

REPORT INFORMATION
  Report Type: Spontaneous
  Country: GB (occurrence: GB)
  Receive Date: 20181210
  Receipt Date: 20181210
  Transmission Date: 20190205
  Serious: Yes (Death, Hospitalization, Other)
  Sender: FDA-Public Use
  Company Number: GXKR2008GB13028

PATIENT
  Age: 73 Year
  Sex: Female
  Weight: 57 kg

DRUGS (9)
  1. FERROUS SULFATE. [Concomitant]
     Active Substance: FERROUS SULFATE
     Dosage: 1 OT, QD
     Route: 048
  2. NITRAZEPAM [Concomitant]
     Active Substance: NITRAZEPAM
     Indication: INSOMNIA
     Dosage: 10 MG, UNK
     Route: 048
  3. METHOTREXATE. [Suspect]
     Active Substance: METHOTREXATE
     Indication: RHEUMATOID ARTHRITIS
     Dosage: 7.5 MG, QD
     Route: 048
     Dates: start: 20040621, end: 20040629
  4. FERROUS SULFATE. [Concomitant]
     Active Substance: FERROUS SULFATE
     Indication: ANAEMIA
     Route: 048
  5. MST [Concomitant]
     Indication: PAIN
     Dosage: 80 MG, QD (40 MG, 2X/DAY)
     Route: 048
  6. FOLIC ACID. [Concomitant]
     Active Substance: FOLIC ACID
     Indication: RHEUMATOID ARTHRITIS
     Dosage: 10 MG, UNK
     Route: 048
     Dates: start: 20040621
  7. ROFECOXIB [Concomitant]
     Active Substance: ROFECOXIB
     Dosage: UNK
     Route: 048
  8. PREDNISOLONE. [Concomitant]
     Active Substance: PREDNISOLONE
     Indication: RHEUMATOID ARTHRITIS
     Dosage: 7.5 MG, QD
     Route: 048
     Dates: start: 20040621
  9. ROFECOXIB [Concomitant]
     Active Substance: ROFECOXIB
     Indication: PAIN
     Dosage: 25 MG, QD
     Route: 048

REACTIONS (15)
  - Pancytopenia [Fatal]
  - Toxicity to various agents [Fatal]
  - Neutropenic sepsis [Fatal]
  - Myocardial infarction [Fatal]
  - Coronary artery thrombosis [Fatal]
  - Product administration error [Fatal]
  - Petechiae [Not Recovered/Not Resolved]
  - Oral candidiasis [Not Recovered/Not Resolved]
  - Accidental overdose [Fatal]
  - Mouth ulceration [Fatal]
  - Lung neoplasm malignant [Fatal]
  - Herpes zoster [Not Recovered/Not Resolved]
  - Haemoglobin decreased [Not Recovered/Not Resolved]
  - White blood cell count decreased [Not Recovered/Not Resolved]
  - Platelet count decreased [Not Recovered/Not Resolved]

NARRATIVE: CASE EVENT DATE: 20040621
